FAERS Safety Report 11754233 (Version 1)
Quarter: 2015Q4

REPORT INFORMATION
  Report Type: Spontaneous
  Country: US (occurrence: US)
  Receive Date: 20151119
  Receipt Date: 20151119
  Transmission Date: 20160304
  Serious: No
  Sender: FDA-Public Use
  Company Number: US-MYLANLABS-2015M1018835

PATIENT
  Sex: Female
  Weight: 52.15 kg

DRUGS (2)
  1. NADOLOL TABLETS, USP [Suspect]
     Active Substance: NADOLOL
     Indication: TREMOR
     Dosage: 20 MG, HS
     Route: 048
     Dates: start: 2007, end: 2007
  2. NADOLOL TABLETS, USP [Suspect]
     Active Substance: NADOLOL
     Indication: OFF LABEL USE

REACTIONS (2)
  - Drug ineffective for unapproved indication [Recovered/Resolved]
  - Tremor [Recovered/Resolved]

NARRATIVE: CASE EVENT DATE: 2007
